FAERS Safety Report 25861652 (Version 1)
Quarter: 2025Q3

REPORT INFORMATION
  Report Type: Spontaneous
  Country: US (occurrence: US)
  Receive Date: 20250930
  Receipt Date: 20250930
  Transmission Date: 20251020
  Serious: Yes (Other)
  Sender: AMGEN
  Company Number: US-AMGEN-USASP2025190081

PATIENT
  Age: 75 Year
  Sex: Male

DRUGS (3)
  1. CARFILZOMIB [Suspect]
     Active Substance: CARFILZOMIB
     Indication: Plasma cell myeloma refractory
     Route: 065
  2. TOLODODEKIN ALFA [Suspect]
     Active Substance: TOLODODEKIN ALFA
     Indication: Plasma cell myeloma refractory
     Route: 065
  3. DEXAMETHASONE [Suspect]
     Active Substance: DEXAMETHASONE
     Indication: Plasma cell myeloma refractory
     Route: 065

REACTIONS (4)
  - Cardiac failure congestive [Unknown]
  - Atrial fibrillation [Unknown]
  - Acute kidney injury [Unknown]
  - Plasma cell myeloma refractory [Unknown]

NARRATIVE: CASE EVENT DATE: 20240101
